FAERS Safety Report 4271245-9 (Version None)
Quarter: 2004Q1

REPORT INFORMATION
  Report Type: 
  Country: None (occurrence: None)
  Receive Date: 20040113
  Receipt Date: 20040106
  Transmission Date: 20041129
  Serious: No
  Sender: FDA-Public Use
  Company Number: 04H-163-0246272-00

PATIENT

DRUGS (3)
  1. MIDAZOLAM HYDROCHLORIDE [Suspect]
     Indication: SEDATION
     Dosage: INTRAVENOUS
     Route: 042
  2. FENTANYL [Suspect]
     Indication: SEDATION
     Dosage: INTRAVENOUS
     Route: 042
  3. OXYGEN [Concomitant]

REACTIONS (2)
  - HYPOXIA [None]
  - STRIDOR [None]
